FAERS Safety Report 8596260-6 (Version None)
Quarter: 2012Q3

REPORT INFORMATION
  Report Type: 
  Country: None (occurrence: None)
  Receive Date: 20120815
  Receipt Date: 20120713
  Transmission Date: 20120928
  Serious: No
  Sender: FDA-Public Use
  Company Number: US-ASTRAZENECA-2012SE48866

PATIENT
  Age: 88 Year
  Sex: Male
  Weight: 77.1 kg

DRUGS (9)
  1. MULTI-VITAMINS [Concomitant]
  2. FISH OIL [Concomitant]
  3. AMBIEN [Concomitant]
  4. ASPIRIN [Concomitant]
     Indication: ANAEMIA
  5. FLOMAX [Concomitant]
  6. SYMBICORT [Suspect]
     Indication: DYSPNOEA
     Dosage: 80/4.5 2 PUFFS BID
     Route: 055
     Dates: start: 20120101, end: 20120101
  7. MEDICATION FOR NERVES [Concomitant]
     Indication: NERVOUS SYSTEM DISORDER
  8. TESTOSTERONE SHOT [Concomitant]
     Indication: ANAEMIA
  9. B12 SHOT [Concomitant]

REACTIONS (11)
  - CHEST PAIN [None]
  - PAIN [None]
  - MUSCULOSKELETAL PAIN [None]
  - BACK PAIN [None]
  - DYSPNOEA [None]
  - FATIGUE [None]
  - CONDITION AGGRAVATED [None]
  - PRESYNCOPE [None]
  - NECK PAIN [None]
  - HYPOTENSION [None]
  - DRUG INEFFECTIVE [None]
